FAERS Safety Report 8586551-7 (Version None)
Quarter: 2012Q3

REPORT INFORMATION
  Report Type: 
  Country: None (occurrence: None)
  Receive Date: 20120810
  Receipt Date: 20120802
  Transmission Date: 20120928
  Serious: Yes (Hospitalization)
  Sender: FDA-Public Use
  Company Number: US-UCBSA-063023

PATIENT
  Age: 50 Year
  Sex: Female
  Weight: 101.2 kg

DRUGS (27)
  1. MESALAMINE [Concomitant]
     Dates: start: 20030826, end: 20050422
  2. PREDNISONE TAB [Concomitant]
     Dates: start: 20060118, end: 20080401
  3. PROMETHAZINE [Concomitant]
     Indication: NAUSEA
     Route: 048
     Dates: start: 20101101
  4. BUPROPION HCL [Concomitant]
     Indication: DEPRESSION
     Route: 048
     Dates: start: 20090101
  5. GLIMEPIRIDE [Concomitant]
     Indication: DIABETES MELLITUS
     Route: 048
     Dates: start: 20111115
  6. AZELASTINE HCL [Concomitant]
     Indication: SEASONAL ALLERGY
     Dosage: 1 SPRAY
     Route: 045
     Dates: start: 20111115
  7. POTASSIUM CHLORIDE [Concomitant]
     Indication: HYPOKALAEMIA
     Route: 048
     Dates: start: 20120301
  8. PREDNISONE TAB [Concomitant]
     Dates: start: 20110728
  9. METHOTREXATE [Concomitant]
     Indication: CROHN'S DISEASE
     Dates: start: 20030425, end: 20030101
  10. METHOTREXATE [Concomitant]
     Dates: start: 20090201
  11. CALCIUM CARBONATE [Concomitant]
     Indication: GASTROOESOPHAGEAL REFLUX DISEASE
     Dosage: 2 TABLETS
     Route: 048
     Dates: start: 20110101
  12. COLESTIDE [Concomitant]
     Indication: DIARRHOEA
     Dosage: 4 TABLETS
     Route: 048
     Dates: start: 20111219
  13. MESALAMINE [Concomitant]
     Dates: start: 20050504, end: 20090508
  14. PREDNISONE TAB [Concomitant]
     Indication: CROHN'S DISEASE
     Dates: start: 19870101, end: 20050201
  15. METFORMIN HYDROCHLORIDE [Concomitant]
     Indication: DIABETES MELLITUS
     Route: 048
     Dates: start: 20111115
  16. CIMZIA [Suspect]
     Indication: CROHN'S DISEASE
     Route: 058
     Dates: start: 20091031, end: 20110615
  17. MESALAMINE [Concomitant]
     Indication: CROHN'S DISEASE
     Dates: start: 20010101, end: 20030826
  18. METHOTREXATE [Concomitant]
     Dates: start: 20060301, end: 20060801
  19. MIRTAZAPINE [Concomitant]
     Indication: DEPRESSION
     Route: 048
     Dates: start: 20100101
  20. FOLIC ACID [Concomitant]
     Indication: FOLATE DEFICIENCY
     Route: 048
     Dates: start: 20110301
  21. DICYCLOMINE [Concomitant]
     Indication: ABDOMINAL TENDERNESS
     Route: 048
     Dates: start: 20111005
  22. WARFARIN SODIUM [Concomitant]
     Indication: PROPHYLAXIS
     Route: 048
     Dates: start: 20101127
  23. DEXILANT [Concomitant]
     Indication: GASTROOESOPHAGEAL REFLUX DISEASE
     Route: 048
     Dates: start: 20101101
  24. MESALAMINE [Concomitant]
     Dates: start: 20090508
  25. PREDNISONE TAB [Concomitant]
     Dates: start: 20090701
  26. ZOLPIDEM [Concomitant]
     Indication: INSOMNIA
     Route: 048
     Dates: start: 20111115
  27. FUROSEMIDE [Concomitant]
     Indication: OEDEMA PERIPHERAL
     Route: 048
     Dates: start: 20120301

REACTIONS (1)
  - SEPSIS [None]
